FAERS Safety Report 14506156 (Version 1)
Quarter: 2018Q1

REPORT INFORMATION
  Report Type: Spontaneous
  Country: US (occurrence: US)
  Receive Date: 20180207
  Receipt Date: 20180207
  Transmission Date: 20180509
  Serious: Yes (Other)
  Sender: FDA-Public Use
  Company Number: None

PATIENT
  Age: 38 Year
  Sex: Female
  Weight: 94.5 kg

DRUGS (7)
  1. SIMETHICON [Concomitant]
  2. FENTANYL TRANSDERMAL SYSTEM [Suspect]
     Active Substance: FENTANYL
     Indication: PAIN
     Dosage: ?          OTHER STRENGTH:MCG/H;QUANTITY:5 PATCH(ES);OTHER FREQUENCY:EVERY 72 HOURS;?
     Route: 062
  3. PRILOSEC [Concomitant]
     Active Substance: OMEPRAZOLE MAGNESIUM
  4. MS CONTIN [Concomitant]
     Active Substance: MORPHINE SULFATE
  5. MSIR [Concomitant]
     Active Substance: MORPHINE SULFATE
  6. CHEMO [Concomitant]
     Active Substance: UNSPECIFIED INGREDIENT
  7. ZOFRAN [Concomitant]
     Active Substance: ONDANSETRON HYDROCHLORIDE

REACTIONS (4)
  - Motion sickness [None]
  - Product substitution issue [None]
  - Nausea [None]
  - Dizziness [None]

NARRATIVE: CASE EVENT DATE: 20180114
